FAERS Safety Report 9245936 (Version 1)
Quarter: 2013Q2

REPORT INFORMATION
  Report Type: Report from Study
  Country: CA (occurrence: CA)
  Receive Date: 20130422
  Receipt Date: 20130422
  Transmission Date: 20140414
  Serious: Yes (Hospitalization)
  Sender: FDA-Public Use
  Company Number: CA-JNJFOC-20130300761

PATIENT
  Sex: Male
  Weight: 62.4 kg

DRUGS (5)
  1. REMICADE [Suspect]
     Indication: COLITIS ULCERATIVE
     Route: 042
  2. REMICADE [Suspect]
     Indication: COLITIS ULCERATIVE
     Route: 042
     Dates: start: 201211
  3. PREDNISONE [Concomitant]
     Route: 065
  4. PANTOLOC [Concomitant]
     Route: 065
  5. VITAMIN B12 [Concomitant]
     Route: 065

REACTIONS (3)
  - Condition aggravated [Recovering/Resolving]
  - Weight decreased [Recovering/Resolving]
  - Rash pruritic [Unknown]
